FAERS Safety Report 4874290-5 (Version None)
Quarter: 2006Q1

REPORT INFORMATION
  Report Type: 
  Country: None (occurrence: None)
  Receive Date: 20060106
  Receipt Date: 20051005
  Transmission Date: 20060701
  Serious: Yes (Death, Hospitalization, Other)
  Sender: FDA-Public Use
  Company Number: US-MERCK-0510USA04369

PATIENT
  Age: 90 Year
  Sex: Male
  Weight: 57 kg

DRUGS (1)
  1. VIOXX [Suspect]
     Indication: ARTHRITIS
     Route: 048
     Dates: start: 20031205, end: 20040801

REACTIONS (6)
  - CEREBROVASCULAR ACCIDENT [None]
  - DEATH [None]
  - ENCEPHALOPATHY [None]
  - LOWER GASTROINTESTINAL HAEMORRHAGE [None]
  - PNEUMONIA [None]
  - RENAL FAILURE ACUTE [None]
